FAERS Safety Report 20239067 (Version 1)
Quarter: 2021Q4

REPORT INFORMATION
  Report Type: Spontaneous
  Country: US (occurrence: US)
  Receive Date: 20211228
  Receipt Date: 20211228
  Transmission Date: 20220304
  Serious: No
  Sender: FDA-Public Use
  Company Number: US-BAUSCH-BL-2021-041805

PATIENT
  Sex: Male

DRUGS (2)
  1. UCERIS [Suspect]
     Active Substance: BUDESONIDE
     Indication: Crohn^s disease
     Route: 054
     Dates: start: 202111
  2. UCERIS [Suspect]
     Active Substance: BUDESONIDE
     Indication: Product use in unapproved indication

REACTIONS (3)
  - Product use in unapproved indication [Unknown]
  - Liquid product physical issue [Unknown]
  - Device delivery system issue [Unknown]

NARRATIVE: CASE EVENT DATE: 20210101
